FAERS Safety Report 25942964 (Version 1)
Quarter: 2025Q4

REPORT INFORMATION
  Report Type: Spontaneous
  Country: JP (occurrence: JP)
  Receive Date: 20251021
  Receipt Date: 20251021
  Transmission Date: 20260118
  Serious: Yes (Death)
  Sender: ROCHE
  Company Number: JP-ROCHE-10000412081

PATIENT
  Age: 78 Year
  Sex: Male

DRUGS (4)
  1. BEVACIZUMAB [Suspect]
     Active Substance: BEVACIZUMAB
     Indication: Hepatocellular carcinoma
     Dosage: 15 MG/KG, DAYS 111 AND 134
     Route: 042
  2. TECENTRIQ [Concomitant]
     Active Substance: ATEZOLIZUMAB
     Indication: Hepatocellular carcinoma
     Dosage: DAYS 111 AND 134
     Route: 042
  3. ASPIRIN [Concomitant]
     Active Substance: ASPIRIN
  4. PRASUGREL [Concomitant]
     Active Substance: PRASUGREL

REACTIONS (1)
  - Vascular stent thrombosis [Fatal]
